FAERS Safety Report 8842620 (Version 1)
Quarter: 2012Q4

REPORT INFORMATION
  Report Type: 
  Country: ZA (occurrence: ZA)
  Receive Date: 20121016
  Receipt Date: 20121016
  Transmission Date: 20130627
  Serious: Yes (Death, Hospitalization)
  Sender: FDA-Public Use
  Company Number: ZA-ROCHE-1145404

PATIENT
  Sex: Female

DRUGS (3)
  1. MIRCERA [Suspect]
     Indication: PRODUCT USED FOR UNKNOWN INDICATION
     Route: 058
     Dates: start: 201204, end: 201208
  2. VENOFER [Concomitant]
     Route: 065
  3. 1-ALPHA [Concomitant]
     Route: 065

REACTIONS (1)
  - Post procedural complication [Fatal]
